FAERS Safety Report 7711037-9 (Version None)
Quarter: 2011Q3

REPORT INFORMATION
  Report Type: 
  Country: None (occurrence: None)
  Receive Date: 20110825
  Receipt Date: 20110819
  Transmission Date: 20111222
  Serious: Yes (Hospitalization)
  Sender: FDA-Public Use
  Company Number: US-BRISTOL-MYERS SQUIBB COMPANY-15945579

PATIENT
  Age: 56 Year
  Sex: Female
  Weight: 54 kg

DRUGS (22)
  1. MEGACE [Concomitant]
     Route: 048
     Dates: start: 20110721
  2. DEXAMETHASONE SODIUM PHOSPHATE [Concomitant]
     Route: 065
     Dates: start: 20100923
  3. BACTRIM DS [Concomitant]
     Dosage: 1DF:800-160MG
     Route: 048
     Dates: start: 20101005
  4. SODIUM CHLORIDE [Concomitant]
     Route: 042
     Dates: start: 20110125
  5. ZOFRAN [Concomitant]
     Route: 048
     Dates: start: 20100923
  6. DIPHENHYDRAMINE HCL [Concomitant]
     Route: 065
     Dates: start: 20101228
  7. PEGFILGRASTIM [Concomitant]
     Route: 058
     Dates: start: 20101003
  8. PROCHLORPERAZINE [Concomitant]
     Dosage: EVERY 8 HRS
     Route: 054
     Dates: start: 20100923
  9. PROCHLORPERAZINE MALEATE [Concomitant]
     Dosage: EVERY 6 HRS
     Route: 048
     Dates: start: 20100923
  10. CISPLATIN [Suspect]
     Indication: HEAD AND NECK CANCER
     Dosage: INTERRUPTED ON 14JUL11(21D)RESUMED ON 11AUG11 RECENT INF(2ND):14JUL11
     Route: 042
     Dates: start: 20110623
  11. FLUOROURACIL [Suspect]
     Indication: HEAD AND NECK CANCER
     Dosage: INTERRUPTED ON 18JUL11(25D)RESUMED ON 11AUG11 RECENT INF(2ND):18JUL11
     Route: 042
     Dates: start: 20110623
  12. LEXAPRO [Concomitant]
     Route: 048
  13. PREVACID [Concomitant]
     Route: 048
     Dates: start: 20110117
  14. CETUXIMAB [Suspect]
     Indication: HEAD AND NECK CANCER
     Dosage: INTERRUPTED ON 21JUL11(28D)RESUMED ON 11AUG2011 RECENT INF(4TH):21JUL11
     Route: 042
     Dates: start: 20110623
  15. PALONOSETRON [Concomitant]
     Route: 065
     Dates: start: 20100923
  16. OMNIPAQUE 140 [Concomitant]
     Dosage: 100ML(OF 300MG/ML) (100ML UNK)
     Route: 042
     Dates: start: 20101229
  17. RESTORIL [Concomitant]
     Dosage: I CAP AT BED TIME AS NEEDED
     Route: 048
     Dates: start: 20110713
  18. METFORMIN HCL [Concomitant]
     Route: 048
  19. RANITIDINE HCL [Concomitant]
     Dosage: 50MG IN NS 50ML
     Route: 042
     Dates: start: 20101228
  20. FLORINEF [Concomitant]
     Route: 048
     Dates: start: 20110721
  21. EMEND [Concomitant]
     Route: 042
     Dates: start: 20110623
  22. PROMETHAZINE HCL [Concomitant]
     Route: 042
     Dates: start: 20110627

REACTIONS (2)
  - DEHYDRATION [None]
  - CLOSTRIDIUM DIFFICILE COLITIS [None]
